FAERS Safety Report 8592697-X (Version None)
Quarter: 2012Q3

REPORT INFORMATION
  Report Type: 
  Country: None (occurrence: None)
  Receive Date: 20120814
  Receipt Date: 20120703
  Transmission Date: 20120928
  Serious: No
  Sender: FDA-Public Use
  Company Number: US-COVIDIEN/TYCO HEALTHCARE/MALLINCKRODT-T201201896

PATIENT
  Sex: Female
  Weight: 56.689 kg

DRUGS (10)
  1. FENTANYL [Concomitant]
     Dosage: 50 MCG/HR Q3 DAYS
  2. FENTANYL [Suspect]
     Indication: BACK PAIN
     Dosage: 25 UG/HR, Q 3 DAYS
     Route: 062
     Dates: start: 20120101
  3. KLONOPIN [Concomitant]
     Indication: ANXIETY
     Dosage: UNK
  4. OLANZAPINE [Concomitant]
     Indication: DEPRESSION
     Dosage: UNK
  5. OMEPRAZOLE [Concomitant]
     Indication: GASTROOESOPHAGEAL REFLUX DISEASE
     Dosage: UNK
  6. SIMVASTATIN [Concomitant]
     Indication: BLOOD CHOLESTEROL INCREASED
     Dosage: UNK
  7. PAROXETINE [Concomitant]
     Indication: DEPRESSION
     Dosage: UNK
  8. CLONIDINE [Concomitant]
     Indication: BLOOD PRESSURE INCREASED
     Dosage: UNK
  9. FENTANYL [Suspect]
     Indication: BACK PAIN
     Dosage: 12 MCG/HR Q3 DAYS
     Route: 062
     Dates: start: 20120101
  10. LEVOTHYROXINE SODIUM [Concomitant]
     Indication: HYPOTHYROIDISM
     Dosage: UNK

REACTIONS (3)
  - APPLICATION SITE SCAB [None]
  - APPLICATION SITE PRURITUS [None]
  - APPLICATION SITE PAPULES [None]
